FAERS Safety Report 6480842-1 (Version None)
Quarter: 2009Q4

REPORT INFORMATION
  Report Type: 
  Country: None (occurrence: None)
  Receive Date: 20091208
  Receipt Date: 20091127
  Transmission Date: 20100525
  Serious: Yes (Other)
  Sender: FDA-Public Use
  Company Number: ES-WYE-H12413009

PATIENT
  Age: 29 Year
  Sex: Male
  Weight: 84 kg

DRUGS (5)
  1. REFACTO [Suspect]
     Indication: FACTOR VIII DEFICIENCY
     Route: 042
     Dates: start: 20091001, end: 20091117
  2. TENOFOVIR DISOPROXIL FUMARATE [Concomitant]
     Indication: VIRAL INFECTION
     Dosage: NOT PROVIDED
     Route: 065
  3. LOPINAVIR AND RITONAVIR [Concomitant]
     Indication: VIRAL INFECTION
     Dosage: NOT PROVIDED
     Route: 065
  4. PANTOPRAZOLE [Concomitant]
     Dosage: NOT PROVIDED
     Route: 065
  5. ABACAVIR [Concomitant]
     Indication: VIRAL INFECTION
     Dosage: NOT PROVIDED
     Route: 065

REACTIONS (1)
  - FACTOR VIII INHIBITION [None]
